FAERS Safety Report 4501449-9 (Version None)
Quarter: 2004Q4

REPORT INFORMATION
  Report Type: 
  Country: None (occurrence: None)
  Receive Date: 20040928
  Receipt Date: 20040818
  Transmission Date: 20050328
  Serious: No
  Sender: FDA-Public Use
  Company Number: 04P-163-0270938-00

PATIENT
  Age: 65 Year
  Sex: Female
  Weight: 113.3993 kg

DRUGS (7)
  1. HUMIRA [Suspect]
     Indication: RHEUMATOID ARTHRITIS
     Dosage: 40 MG, 1IN 2 WK, SUBCUTANEOUS
     Route: 058
     Dates: start: 20030801
  2. ACETAMINOPHEN W/ CODEINE [Concomitant]
  3. PREDNISONE [Concomitant]
  4. AMLODIPINE BESYLATE [Concomitant]
  5. POTASSIUIM [Concomitant]
  6. HYDROXYCHLOROTHIAZIDE [Concomitant]
  7. PERPHENAZINE [Concomitant]

REACTIONS (3)
  - ANKLE FRACTURE [None]
  - CONTUSION [None]
  - SKIN PAPILLOMA [None]
